FAERS Safety Report 10201067 (Version 1)
Quarter: 2014Q2

REPORT INFORMATION
  Report Type: Spontaneous
  Country: FR (occurrence: FR)
  Receive Date: 20140528
  Receipt Date: 20140528
  Transmission Date: 20141212
  Serious: Yes (Hospitalization)
  Sender: FDA-Public Use
  Company Number: FR-SA-2014SA063629

PATIENT
  Age: 74 Year
  Sex: Male

DRUGS (8)
  1. RIFATER [Suspect]
     Indication: TUBERCULOSIS
     Route: 065
     Dates: start: 20131123, end: 20131224
  2. DEXAMBUTOL [Suspect]
     Indication: TUBERCULOSIS
     Route: 065
     Dates: start: 20131123, end: 20131224
  3. FLECAINE [Concomitant]
  4. AMLODIPINE [Concomitant]
  5. TAHOR [Concomitant]
  6. DIFFU K [Concomitant]
  7. KARDEGIC [Concomitant]
  8. CONTRAMAL [Concomitant]

REACTIONS (15)
  - Prothrombin time shortened [Recovered/Resolved with Sequelae]
  - Coagulation factor V level decreased [Recovered/Resolved with Sequelae]
  - Rash [Recovered/Resolved with Sequelae]
  - Pyrexia [Recovered/Resolved with Sequelae]
  - Skin disorder [Recovered/Resolved with Sequelae]
  - Toxic skin eruption [Recovered/Resolved with Sequelae]
  - Histiocytosis haematophagic [Recovered/Resolved with Sequelae]
  - Pharyngitis [Recovered/Resolved with Sequelae]
  - Pleural effusion [Recovered/Resolved with Sequelae]
  - Pericardial effusion [Recovered/Resolved with Sequelae]
  - Ascites [Recovered/Resolved with Sequelae]
  - Drug reaction with eosinophilia and systemic symptoms [Recovered/Resolved with Sequelae]
  - Hepatic failure [Recovered/Resolved with Sequelae]
  - Renal impairment [Recovered/Resolved with Sequelae]
  - Eosinophilia [Recovered/Resolved with Sequelae]
